FAERS Safety Report 5777876-9 (Version None)
Quarter: 2008Q2

REPORT INFORMATION
  Report Type: 
  Country: None (occurrence: None)
  Receive Date: 20080618
  Receipt Date: 20080606
  Transmission Date: 20081010
  Serious: Yes (Other)
  Sender: FDA-Public Use
  Company Number: ES-GILEAD-2008-0016863

PATIENT

DRUGS (3)
  1. VIREAD [Suspect]
  2. ABACAVIR [Concomitant]
  3. EFAVIRENZ [Concomitant]

REACTIONS (1)
  - DRUG RESISTANCE [None]
